FAERS Safety Report 19093869 (Version 1)
Quarter: 2021Q2

REPORT INFORMATION
  Report Type: Spontaneous
  Country: CA (occurrence: CA)
  Receive Date: 20210405
  Receipt Date: 20210405
  Transmission Date: 20210717
  Serious: Yes (Hospitalization)
  Sender: FDA-Public Use
  Company Number: CA-TEVA-2021-CA-1897212

PATIENT
  Age: 71 Year
  Sex: Male

DRUGS (15)
  1. OXAZEPAM. [Concomitant]
     Active Substance: OXAZEPAM
  2. DECADRON [Concomitant]
     Active Substance: DEXAMETHASONE
  3. LAX?A?DAY [Concomitant]
     Active Substance: POLYETHYLENE GLYCOL 3350
  4. DOCETAXEL. [Suspect]
     Active Substance: DOCETAXEL
     Indication: OESOPHAGEAL CARCINOMA
     Route: 065
  5. DEXILANT [Concomitant]
     Active Substance: DEXLANSOPRAZOLE
  6. DECADRON [Concomitant]
     Active Substance: DEXAMETHASONE
  7. DEXILANT [Concomitant]
     Active Substance: DEXLANSOPRAZOLE
  8. FENTANYL. [Concomitant]
     Active Substance: FENTANYL
  9. FLUOROURACIL. [Suspect]
     Active Substance: FLUOROURACIL
     Indication: OESOPHAGEAL CARCINOMA
     Route: 065
  10. HYDROMORPHONE [Concomitant]
     Active Substance: HYDROMORPHONE
  11. ATENOLOL TABLETS, BP [Concomitant]
     Active Substance: ATENOLOL
  12. LANTUS [Concomitant]
     Active Substance: INSULIN GLARGINE
  13. LEUCOVORIN. [Suspect]
     Active Substance: LEUCOVORIN
     Indication: OESOPHAGEAL CARCINOMA
     Route: 065
  14. OXALIPLATIN INJECTION, SOLUTION FOR INJECTION, USP [Suspect]
     Active Substance: OXALIPLATIN
     Indication: OESOPHAGEAL CARCINOMA
     Route: 065
  15. ATENOLOL TABLETS, BP [Concomitant]
     Active Substance: ATENOLOL

REACTIONS (4)
  - Atrial fibrillation [Unknown]
  - Febrile neutropenia [Unknown]
  - Asthenia [Unknown]
  - Back pain [Unknown]
